FAERS Safety Report 9839071 (Version 1)
Quarter: 2014Q1

REPORT INFORMATION
  Report Type: Report from Study
  Country: BR (occurrence: BR)
  Receive Date: 20140123
  Receipt Date: 20140123
  Transmission Date: 20141002
  Serious: Yes (Death, Other)
  Sender: FDA-Public Use
  Company Number: ALCN2014BR000788

PATIENT
  Age: 92 Year
  Sex: Female
  Weight: 41 kg

DRUGS (6)
  1. TRAVATAN [Suspect]
     Indication: GLAUCOMA
     Dosage: 1 GTT, QD
     Route: 047
     Dates: start: 2009
  2. COSOPT [Concomitant]
     Indication: GLAUCOMA
     Dosage: 1 GTT, BID
     Route: 047
     Dates: start: 2010
  3. ENSURE [Concomitant]
     Dosage: 1 DF, UNK
     Route: 048
     Dates: start: 2012
  4. CARBAMAZEPINE [Concomitant]
     Indication: CONVULSION
     Dosage: 100 MG, UNK
     Route: 048
  5. RIVOTRIL [Concomitant]
     Dosage: 1 UNK, UNK
     Route: 048
  6. OMEGA DAILY [Concomitant]
     Dosage: 1 UNK, UNK
     Route: 048
     Dates: start: 2012

REACTIONS (2)
  - Cardiac arrest [Fatal]
  - Cerebrovascular accident [Fatal]
